FAERS Safety Report 18705533 (Version 1)
Quarter: 2021Q1

REPORT INFORMATION
  Report Type: Spontaneous
  Country: JP (occurrence: JP)
  Receive Date: 20210106
  Receipt Date: 20210106
  Transmission Date: 20210419
  Serious: Yes (Other)
  Sender: FDA-Public Use
  Company Number: NVSJ2020JP013053

PATIENT
  Age: 79 Year
  Sex: Male

DRUGS (2)
  1. BEOVU [Suspect]
     Active Substance: BROLUCIZUMAB-DBLL
     Indication: AGE-RELATED MACULAR DEGENERATION
     Dosage: 6 MG
     Route: 031
     Dates: start: 20200730, end: 20200730
  2. BEOVU [Suspect]
     Active Substance: BROLUCIZUMAB-DBLL
     Dosage: 6 MG
     Route: 031
     Dates: start: 20200827, end: 20200827

REACTIONS (9)
  - Iridocyclitis [Not Recovered/Not Resolved]
  - Retinal exudates [Unknown]
  - General physical health deterioration [Unknown]
  - Visual acuity reduced [Recovered/Resolved with Sequelae]
  - Uveitis [Recovering/Resolving]
  - Vitreous opacities [Not Recovered/Not Resolved]
  - Visual impairment [Recovered/Resolved]
  - Retinal haemorrhage [Unknown]
  - Anterior chamber inflammation [Unknown]

NARRATIVE: CASE EVENT DATE: 20200903
